FAERS Safety Report 10511650 (Version 2)
Quarter: 2014Q4

REPORT INFORMATION
  Report Type: Report from Study
  Country: US (occurrence: US)
  Receive Date: 20141010
  Receipt Date: 20141203
  Transmission Date: 20150528
  Serious: Yes (Hospitalization, Other)
  Sender: FDA-Public Use
  Company Number: US-BRISTOL-MYERS SQUIBB COMPANY-21460001

PATIENT
  Age: 83 Year
  Sex: Female
  Weight: 69.39 kg

DRUGS (8)
  1. ONGLYZA [Suspect]
     Active Substance: SAXAGLIPTIN HYDROCHLORIDE
     Indication: TYPE 2 DIABETES MELLITUS
     Route: 048
     Dates: start: 2013
  2. CARDENE [Concomitant]
     Active Substance: NICARDIPINE HYDROCHLORIDE
  3. AVALIDE [Concomitant]
     Active Substance: HYDROCHLOROTHIAZIDE\IRBESARTAN
  4. TOPROL XL [Concomitant]
     Active Substance: METOPROLOL SUCCINATE
  5. ASPIRIN. [Concomitant]
     Active Substance: ASPIRIN
  6. DORZOLAMIDE HCL [Concomitant]
     Active Substance: DORZOLAMIDE HYDROCHLORIDE
  7. LIPITOR [Concomitant]
     Active Substance: ATORVASTATIN CALCIUM
  8. TIMOLOL [Concomitant]
     Active Substance: TIMOLOL

REACTIONS (7)
  - Decreased appetite [Unknown]
  - Nausea [Not Recovered/Not Resolved]
  - Localised infection [Recovering/Resolving]
  - Limb injury [Recovering/Resolving]
  - Glycosylated haemoglobin decreased [Recovered/Resolved]
  - Weight decreased [Unknown]
  - Hypoglycaemia [Unknown]

NARRATIVE: CASE EVENT DATE: 2013
